FAERS Safety Report 9856679 (Version 1)
Quarter: 2014Q1

REPORT INFORMATION
  Report Type: Spontaneous
  Country: US (occurrence: US)
  Receive Date: 20140130
  Receipt Date: 20140130
  Transmission Date: 20141002
  Serious: Yes (Death, Hospitalization)
  Sender: FDA-Public Use
  Company Number: US-GLAXOSMITHKLINE-A1057698A

PATIENT
  Age: 78 Year
  Sex: Female

DRUGS (19)
  1. ADVAIR [Suspect]
     Indication: CHRONIC OBSTRUCTIVE PULMONARY DISEASE
     Route: 055
  2. BUSPAR [Concomitant]
  3. DILTIAZEM [Concomitant]
  4. CITALOPRAM [Concomitant]
  5. PREDNISONE [Concomitant]
  6. HCTZ [Concomitant]
  7. CALCIUM [Concomitant]
  8. TOVIAZ [Concomitant]
  9. ZYRTEC [Concomitant]
  10. STOOL SOFTENER [Concomitant]
  11. KLOR CON [Concomitant]
  12. SINGULAR [Concomitant]
  13. PRAVASTATIN [Concomitant]
  14. RISPERIDONE [Concomitant]
  15. CENTRUM SILVER [Concomitant]
  16. FOSAMAX [Concomitant]
  17. OXYGEN [Concomitant]
  18. XOPENEX [Concomitant]
  19. SPIRIVA [Concomitant]

REACTIONS (5)
  - Cardio-respiratory arrest [Fatal]
  - Acute respiratory failure [Fatal]
  - Chronic respiratory failure [Fatal]
  - Chronic obstructive pulmonary disease [Fatal]
  - Loss of consciousness [Unknown]
